FAERS Safety Report 4266738-4 (Version None)
Quarter: 2004Q1

REPORT INFORMATION
  Report Type: 
  Country: None (occurrence: None)
  Receive Date: 20040108
  Receipt Date: 20031209
  Transmission Date: 20041129
  Serious: Yes (Hospitalization, Other)
  Sender: FDA-Public Use
  Company Number: JP-GLAXOSMITHKLINE-B0318538A

PATIENT
  Age: 74 Year
  Sex: Female
  Weight: 47 kg

DRUGS (12)
  1. PAROXETINE HCL [Suspect]
     Indication: DEPRESSION
     Dosage: 20MG PER DAY
     Route: 048
     Dates: start: 20030917, end: 20031112
  2. SULPIRIDE [Concomitant]
     Indication: DEPRESSION
     Route: 048
     Dates: start: 20020129, end: 20031007
  3. FLUNITRAZEPAM [Concomitant]
     Route: 048
     Dates: start: 20030723, end: 20031113
  4. MOSAPRIDE CITRATE [Concomitant]
     Indication: STOMACH DISCOMFORT
     Dosage: 15MG PER DAY
     Route: 048
     Dates: start: 20030917
  5. FAMOTIDINE [Concomitant]
     Dosage: 10MG PER DAY
     Route: 048
     Dates: start: 20030723
  6. DIAZEPAM [Concomitant]
     Dosage: 2MG PER DAY
     Route: 048
     Dates: start: 20031008
  7. LOXOPROFEN SODIUM [Concomitant]
     Dosage: 60MG PER DAY
     Route: 048
     Dates: start: 20031010
  8. CHINESE HERBAL MEDICINE [Concomitant]
     Indication: CONSTIPATION
     Dosage: 1G PER DAY
     Route: 048
     Dates: start: 20031024
  9. MECOBALAMIN [Concomitant]
     Dosage: 1000MG PER DAY
     Route: 048
     Dates: start: 20031107
  10. ZOLPIDEM TARTRATE [Concomitant]
     Dosage: 10MG PER DAY
     Route: 048
     Dates: start: 20031024
  11. BIPERIDEN HYDROCHLORIDE [Concomitant]
     Dosage: 2MG PER DAY
     Route: 048
     Dates: start: 20031107
  12. CLONAZEPAM [Concomitant]
     Dosage: 1MG PER DAY
     Route: 048
     Dates: start: 20031115

REACTIONS (11)
  - ANOREXIA [None]
  - BLOOD ALDOSTERONE DECREASED [None]
  - FATIGUE [None]
  - HYPONATRAEMIA [None]
  - INSOMNIA [None]
  - MALAISE [None]
  - MUSCLE RIGIDITY [None]
  - RENIN DECREASED [None]
  - SLUGGISHNESS [None]
  - TREMOR [None]
  - WAXY FLEXIBILITY [None]
